FAERS Safety Report 11614733 (Version 2)
Quarter: 2015Q4

REPORT INFORMATION
  Report Type: Report from Study
  Country: CA (occurrence: CA)
  Receive Date: 20151009
  Receipt Date: 20151022
  Transmission Date: 20160304
  Serious: Yes (Other)
  Sender: FDA-Public Use
  Company Number: CA-ROCHE-1338412

PATIENT
  Age: 44 Year
  Sex: Female

DRUGS (19)
  1. RITUXAN [Suspect]
     Active Substance: RITUXIMAB
     Route: 042
     Dates: start: 20140730
  2. METHYLPREDNISOLONE. [Suspect]
     Active Substance: METHYLPREDNISOLONE
     Indication: PREMEDICATION
     Route: 042
  3. COLACE [Concomitant]
     Active Substance: DOCUSATE SODIUM
     Route: 065
  4. TRAMADOL. [Concomitant]
     Active Substance: TRAMADOL
  5. DOMPERIDONE [Concomitant]
     Active Substance: DOMPERIDONE
  6. MELATONIN [Suspect]
     Active Substance: MELATONIN
     Indication: PRODUCT USED FOR UNKNOWN INDICATION
     Route: 065
  7. RITUXAN [Suspect]
     Active Substance: RITUXIMAB
     Route: 042
     Dates: start: 20140206
  8. RITUXAN [Suspect]
     Active Substance: RITUXIMAB
     Indication: RHEUMATOID ARTHRITIS
     Dosage: DATE TO MOST RECENT DOSE: 09/MAR/2015?LAST DOSE: 23/MAR/2015
     Route: 042
     Dates: start: 20140120
  9. TYLENOL [Suspect]
     Active Substance: ACETAMINOPHEN
     Indication: HEADACHE
     Route: 065
  10. VITAMIN C [Concomitant]
     Active Substance: ASCORBIC ACID
  11. RANITIDINE [Concomitant]
     Active Substance: RANITIDINE\RANITIDINE HYDROCHLORIDE
  12. SENOKOT [Concomitant]
     Active Substance: SENNOSIDES
  13. AMITRIPTYLINE [Concomitant]
     Active Substance: AMITRIPTYLINE
  14. VITAMIN B12 [Concomitant]
     Active Substance: CYANOCOBALAMIN
  15. CETIRIZINE [Suspect]
     Active Substance: CETIRIZINE HYDROCHLORIDE
     Indication: NASOPHARYNGITIS
     Route: 065
  16. RABEPRAZOLE [Concomitant]
     Active Substance: RABEPRAZOLE
  17. PSYLLIUM FIBER [Concomitant]
  18. RITUXAN [Suspect]
     Active Substance: RITUXIMAB
     Route: 042
     Dates: start: 20140818
  19. ZOFRAN [Suspect]
     Active Substance: ONDANSETRON HYDROCHLORIDE
     Indication: NAUSEA
     Route: 065

REACTIONS (44)
  - Sinusitis [Unknown]
  - Sinus disorder [Recovered/Resolved]
  - Gingival pain [Not Recovered/Not Resolved]
  - Constipation [Not Recovered/Not Resolved]
  - Urticaria [Recovered/Resolved]
  - Tinnitus [Recovering/Resolving]
  - Tinnitus [Not Recovered/Not Resolved]
  - Neuralgia [Unknown]
  - Dry mouth [Not Recovered/Not Resolved]
  - Fatigue [Not Recovered/Not Resolved]
  - Headache [Not Recovered/Not Resolved]
  - Body temperature fluctuation [Not Recovered/Not Resolved]
  - Decreased appetite [Not Recovered/Not Resolved]
  - Restless legs syndrome [Unknown]
  - Vision blurred [Recovered/Resolved]
  - Lower respiratory tract infection [Recovering/Resolving]
  - Rash [Not Recovered/Not Resolved]
  - Onychoclasis [Not Recovered/Not Resolved]
  - Malaise [Unknown]
  - Nausea [Not Recovered/Not Resolved]
  - Abdominal pain upper [Not Recovered/Not Resolved]
  - Premenstrual syndrome [Unknown]
  - Epistaxis [Recovered/Resolved]
  - Polymenorrhoea [Unknown]
  - Balance disorder [Not Recovered/Not Resolved]
  - Diarrhoea [Not Recovered/Not Resolved]
  - Hypoaesthesia oral [Unknown]
  - Oral pruritus [Unknown]
  - Vision blurred [Unknown]
  - Nausea [Unknown]
  - Menstruation delayed [Not Recovered/Not Resolved]
  - Blister [Not Recovered/Not Resolved]
  - Pharyngeal oedema [Unknown]
  - Lichen sclerosus [Recovered/Resolved]
  - Insomnia [Not Recovered/Not Resolved]
  - Nasopharyngitis [Not Recovered/Not Resolved]
  - Hiatus hernia [Not Recovered/Not Resolved]
  - Infusion related reaction [Recovering/Resolving]
  - Viral infection [Recovering/Resolving]
  - Rheumatoid arthritis [Unknown]
  - Skin burning sensation [Unknown]
  - Fatigue [Unknown]
  - Heart rate increased [Unknown]
  - Oral candidiasis [Unknown]

NARRATIVE: CASE EVENT DATE: 20140120
